FAERS Safety Report 5663627-5 (Version None)
Quarter: 2008Q1

REPORT INFORMATION
  Report Type: 
  Country: None (occurrence: None)
  Receive Date: 20080307
  Receipt Date: 20080303
  Transmission Date: 20080703
  Serious: Yes (Other)
  Sender: FDA-Public Use
  Company Number: 2006SP000333

PATIENT
  Age: 40 Year
  Sex: Male
  Weight: 89.5 kg

DRUGS (2)
  1. PEG-INTRON [Suspect]
     Indication: HEPATITIS C
     Dosage: 0.5 ML;QW;SC
     Route: 058
     Dates: start: 20050112, end: 20060720
  2. RIBAVIRIN [Suspect]
     Indication: HEPATITIS C
     Dosage: 1200 MG;QD;PO
     Route: 048
     Dates: start: 20060112, end: 20060726

REACTIONS (2)
  - LIP SWELLING [None]
  - URTICARIA [None]
